FAERS Safety Report 12383475 (Version 1)
Quarter: 2016Q2

REPORT INFORMATION
  Report Type: Spontaneous
  Country: US (occurrence: US)
  Receive Date: 20160518
  Receipt Date: 20160518
  Transmission Date: 20160815
  Serious: Yes (Disabling, Other)
  Sender: FDA-Public Use
  Company Number: US-TEIKOKU PHARMA USA-TPU2016-00264

PATIENT
  Sex: Female
  Weight: 61.29 kg

DRUGS (5)
  1. TRAMADOL. [Concomitant]
     Active Substance: TRAMADOL
     Indication: BACK PAIN
     Dosage: UP TO 8 TABLETS A DAY
     Route: 048
     Dates: end: 201512
  2. BACLOFEN. [Suspect]
     Active Substance: BACLOFEN
     Indication: BACK PAIN
     Dates: start: 201512, end: 20160205
  3. GABAPENTIN. [Suspect]
     Active Substance: GABAPENTIN
     Indication: BACK PAIN
     Dates: start: 201512, end: 20160205
  4. LIDODERM [Suspect]
     Active Substance: LIDOCAINE
     Indication: BACK PAIN
     Dates: start: 1996, end: 201508
  5. LIDODERM [Suspect]
     Active Substance: LIDOCAINE
     Route: 061
     Dates: start: 201508, end: 201603

REACTIONS (14)
  - Weight increased [Not Recovered/Not Resolved]
  - Apathy [Unknown]
  - Injury [Not Recovered/Not Resolved]
  - Gastric disorder [Not Recovered/Not Resolved]
  - Fall [Recovered/Resolved]
  - Asthenia [Unknown]
  - Fatigue [Not Recovered/Not Resolved]
  - Bedridden [Recovered/Resolved]
  - Disability [Not Recovered/Not Resolved]
  - Feeling abnormal [Unknown]
  - Headache [Unknown]
  - Back injury [Not Recovered/Not Resolved]
  - Accident [Recovered/Resolved]
  - Diarrhoea [Unknown]

NARRATIVE: CASE EVENT DATE: 2006
